FAERS Safety Report 15402421 (Version 1)
Quarter: 2018Q3

REPORT INFORMATION
  Report Type: Spontaneous
  Country: FR (occurrence: FR)
  Receive Date: 20180919
  Receipt Date: 20180919
  Transmission Date: 20181010
  Serious: Yes (Hospitalization)
  Sender: FDA-Public Use
  Company Number: FR-PFIZER INC-2018358779

PATIENT
  Age: 74 Year
  Sex: Male
  Weight: 99 kg

DRUGS (2)
  1. DALACINE [Suspect]
     Active Substance: CLINDAMYCIN
     Dosage: 1800 MG, DAILY
     Route: 048
     Dates: start: 20180727
  2. ELIQUIS [Suspect]
     Active Substance: APIXABAN
     Dosage: 5 MG, DAILY
     Route: 048
     Dates: start: 20180721, end: 20180816

REACTIONS (2)
  - Eosinophilia [Recovering/Resolving]
  - Rash [Recovering/Resolving]

NARRATIVE: CASE EVENT DATE: 20180813
